FAERS Safety Report 7304515-8 (Version None)
Quarter: 2011Q1

REPORT INFORMATION
  Report Type: 
  Country: None (occurrence: None)
  Receive Date: 20110221
  Receipt Date: 20110214
  Transmission Date: 20110831
  Serious: Yes (Death)
  Sender: FDA-Public Use
  Company Number: US-AMGEN-USASP2011008023

PATIENT
  Age: 71 Year
  Sex: Female
  Weight: 53.515 kg

DRUGS (1)
  1. NPLATE [Suspect]
     Indication: OFF LABEL USE
     Dosage: 500 A?G, UNK
     Dates: start: 20100827, end: 20101208

REACTIONS (1)
  - OVARIAN CANCER [None]
